FAERS Safety Report 10726753 (Version 1)
Quarter: 2015Q1

REPORT INFORMATION
  Report Type: Spontaneous
  Country: IE (occurrence: IE)
  Receive Date: 20150121
  Receipt Date: 20150121
  Transmission Date: 20150721
  Serious: Yes (Other)
  Sender: FDA-Public Use
  Company Number: IE-JNJFOC-20150106863

PATIENT
  Age: 6 Decade
  Sex: Male

DRUGS (3)
  1. PREDNISOLONE. [Concomitant]
     Active Substance: PREDNISOLONE
     Route: 065
  2. SIMPONI [Suspect]
     Active Substance: GOLIMUMAB
     Indication: COLITIS ULCERATIVE
     Route: 058
  3. 5-ASA [Concomitant]
     Active Substance: MESALAMINE
     Route: 065

REACTIONS (2)
  - Chest pain [Recovering/Resolving]
  - Gastritis haemorrhagic [Recovering/Resolving]
